FAERS Safety Report 26188602 (Version 1)
Quarter: 2025Q4

REPORT INFORMATION
  Report Type: Spontaneous
  Country: EU (occurrence: EU)
  Receive Date: 20251222
  Receipt Date: 20251222
  Transmission Date: 20260117
  Serious: Yes (Other)
  Sender: IDORSIA PHARMACEUTICALS
  Company Number: None

PATIENT
  Age: 40 Year
  Sex: Male

DRUGS (8)
  1. QUVIVIQ [Suspect]
     Active Substance: DARIDOREXANT
     Indication: Insomnia
     Dosage: 50 MG, QD
     Route: 048
     Dates: start: 20250601
  2. CIMZIA [Suspect]
     Active Substance: CERTOLIZUMAB PEGOL
     Indication: Ankylosing spondylitis
     Dosage: 200 MG EVERY TWO WEEKS
     Route: 065
     Dates: start: 20250601
  3. HYDROCHLOROTHIAZIDE [Suspect]
     Active Substance: HYDROCHLOROTHIAZIDE
     Indication: Product used for unknown indication
     Dosage: 12.5 MG, QD
     Route: 065
  4. COLCHICINE [Suspect]
     Active Substance: COLCHICINE
     Indication: Gouty tophus
     Dosage: 1 MG, QD
     Route: 048
  5. CELECOXIB [Suspect]
     Active Substance: CELECOXIB
     Indication: Ankylosing spondylitis
     Dosage: 200 MG, BID
     Route: 048
     Dates: start: 20250601
  6. FEBUXOSTAT [Suspect]
     Active Substance: FEBUXOSTAT
     Indication: Gouty tophus
     Dosage: 120 MG, QD
     Route: 048
     Dates: start: 20250601
  7. LANSOPRAZOLE [Suspect]
     Active Substance: LANSOPRAZOLE
     Indication: Product used for unknown indication
     Route: 048
     Dates: start: 20250601
  8. BACLOFEN [Suspect]
     Active Substance: BACLOFEN
     Indication: Alcoholism
     Route: 048
     Dates: start: 20250601

REACTIONS (1)
  - Hepatitis acute [Not Recovered/Not Resolved]

NARRATIVE: CASE EVENT DATE: 20250901
